FAERS Safety Report 20907779 (Version 1)
Quarter: 2022Q2

REPORT INFORMATION
  Report Type: Spontaneous
  Country: FR (occurrence: FR)
  Receive Date: 20220602
  Receipt Date: 20220602
  Transmission Date: 20220721
  Serious: Yes (Hospitalization)
  Sender: FDA-Public Use
  Company Number: None

PATIENT
  Age: 69 Year
  Sex: Female
  Weight: 79.2 kg

DRUGS (3)
  1. KEYTRUDA [Suspect]
     Active Substance: PEMBROLIZUMAB
     Indication: Lung adenocarcinoma stage IV
     Dosage: 200 MILLIGRAM, QD,1 TOTAL
     Route: 042
     Dates: start: 20220421, end: 20220421
  2. INNOHEP [Suspect]
     Active Substance: TINZAPARIN SODIUM
     Indication: Prophylaxis
     Dosage: 16000 INTERNATIONAL UNIT, QD, 18,000 ANTI-XA IU/0.9 ML, SOLUTION FOR INJECTION (SC) IN PRE-FILLED SY
     Route: 058
     Dates: start: 202109
  3. PEMETREXED [Suspect]
     Active Substance: PEMETREXED
     Indication: Lung adenocarcinoma stage IV
     Dosage: 975 MILLIGRAM, ONCE, TOTAL
     Route: 042
     Dates: start: 20211021, end: 20220421

REACTIONS (1)
  - Cerebellar haematoma [Recovering/Resolving]

NARRATIVE: CASE EVENT DATE: 20220508
